FAERS Safety Report 9174549 (Version 1)
Quarter: 2013Q1

REPORT INFORMATION
  Report Type: Spontaneous
  Country: US (occurrence: US)
  Receive Date: 20130320
  Receipt Date: 20130320
  Transmission Date: 20140127
  Serious: No
  Sender: FDA-Public Use
  Company Number: US-MYLANLABS-2012S1021145

PATIENT
  Age: 54 Year
  Sex: Female

DRUGS (6)
  1. ESTRADIOL TRANSDERMAL SYSTEM, USP [Suspect]
     Indication: HORMONE REPLACEMENT THERAPY
     Dosage: CHANGED QW
     Route: 062
     Dates: start: 201201
  2. LIPITOR [Concomitant]
     Indication: BLOOD CHOLESTEROL INCREASED
  3. HCTZ [Concomitant]
     Indication: BLOOD PRESSURE INCREASED
  4. TOPROL [Concomitant]
     Indication: BLOOD PRESSURE INCREASED
  5. MVI [Concomitant]
  6. VITAMIN D3 [Concomitant]

REACTIONS (2)
  - Application site erythema [Not Recovered/Not Resolved]
  - Application site pain [Not Recovered/Not Resolved]
